FAERS Safety Report 5531821-X (Version None)
Quarter: 2007Q4

REPORT INFORMATION
  Report Type: 
  Country: None (occurrence: None)
  Receive Date: 20071128
  Receipt Date: 20071128
  Transmission Date: 20080405
  Serious: Yes (Hospitalization)
  Sender: FDA-Public Use
  Company Number: None

PATIENT
  Age: 51 Year
  Sex: Male

DRUGS (2)
  1. METFORMIN HCL [Suspect]
     Indication: DIABETES MELLITUS
     Dosage: 500MG  BID  PO
     Route: 048
     Dates: start: 20070721, end: 20070914
  2. EMTRICITABINE/TENOFOVIR [Suspect]
     Dosage: 200/300MG  EVERY DAY  PO
     Route: 048
     Dates: start: 20050912, end: 20070914

REACTIONS (3)
  - LACTIC ACIDOSIS [None]
  - RENAL FAILURE ACUTE [None]
  - RESPIRATORY ALKALOSIS [None]
